FAERS Safety Report 7908056-6 (Version None)
Quarter: 2011Q4

REPORT INFORMATION
  Report Type: 
  Country: None (occurrence: None)
  Receive Date: 20111111
  Receipt Date: 20111104
  Transmission Date: 20120403
  Serious: Yes (Hospitalization)
  Sender: FDA-Public Use
  Company Number: CH-B.I. PHARMACEUTICALS,INC./RIDGEFIELD-2011-BP-25784YA

PATIENT
  Age: 69 Year
  Sex: Male

DRUGS (5)
  1. TAMSULOSIN HCL [Suspect]
     Route: 048
     Dates: end: 20110118
  2. LERCANIDIPINE [Suspect]
     Dosage: 10 MG
     Route: 048
     Dates: start: 20100101
  3. SEROQUEL [Suspect]
     Dosage: 75 MG
     Route: 048
     Dates: start: 20110118, end: 20110126
  4. NEXIUM IV [Suspect]
     Dosage: 20 MG
     Route: 048
     Dates: start: 20100101
  5. CLOPIDOGREL [Suspect]
     Dosage: 75 MG
     Route: 048
     Dates: start: 20000101

REACTIONS (5)
  - SOMNAMBULISM [None]
  - MUSCULAR WEAKNESS [None]
  - CONFUSIONAL STATE [None]
  - MUSCLE SPASMS [None]
  - DELIRIUM [None]
